FAERS Safety Report 8963757 (Version 3)
Quarter: 2013Q2

REPORT INFORMATION
  Report Type: Report from Study
  Country: JP (occurrence: JP)
  Receive Date: 20121214
  Receipt Date: 20130416
  Transmission Date: 20140414
  Serious: Yes (Death)
  Sender: FDA-Public Use
  Company Number: JP-AMGEN-JPNSP2012080423

PATIENT
  Age: 81 Year
  Sex: Male
  Weight: 54 kg

DRUGS (22)
  1. ROMIPLOSTIM - KHK [Suspect]
     Indication: IDIOPATHIC THROMBOCYTOPENIC PURPURA
     Dosage: 1 MUG/KG, QD
     Route: 058
     Dates: start: 20121205, end: 20121205
  2. PARIET [Concomitant]
     Dosage: 10 MG, BID
     Route: 048
     Dates: start: 20121122
  3. ADONA [Concomitant]
     Dosage: 30 MG, TID
     Route: 048
     Dates: start: 20121122
  4. TRANSAMIN [Concomitant]
     Dosage: 500 MG, TID
     Route: 048
     Dates: start: 20121122
  5. LANIRAPID [Concomitant]
     Dosage: 0.05 MG, QD
     Route: 048
     Dates: start: 20121123
  6. ARTIST [Concomitant]
     Dosage: 2.5 MG, QD
     Route: 048
     Dates: start: 20121123
  7. BAYCARON [Concomitant]
     Dosage: 25 MG, QD
     Route: 048
     Dates: start: 20121123
  8. RENIVACE [Concomitant]
     Dosage: 5 MG, QD
     Route: 048
     Dates: start: 20121123
  9. LASIX [Concomitant]
     Dosage: 20 MG, QD
     Route: 048
     Dates: start: 20121123
  10. ZYLORIC [Concomitant]
     Dosage: 100 MG, TID
     Route: 048
     Dates: start: 20121123
  11. UREPEARL [Concomitant]
     Dosage: UNK, BID
     Dates: start: 20121124
  12. ISODINE GARGLE [Concomitant]
     Dosage: UNK
     Route: 049
     Dates: start: 20121126
  13. AMOBAN [Concomitant]
     Dosage: 7.5 MG, UNK
     Route: 048
     Dates: start: 20121127
  14. PURSENNIDE [Concomitant]
     Dosage: 24 MG, UNK
     Route: 048
     Dates: start: 20121127
  15. REVOLADE [Concomitant]
     Dosage: 12.5 MG, QD
     Route: 048
     Dates: start: 20121128
  16. JANUVIA [Concomitant]
     Dosage: 25 MG, QD
     Route: 048
     Dates: start: 20121129
  17. LACTEC [Concomitant]
     Dosage: 50 ML, UNK
     Route: 041
     Dates: start: 20121203
  18. POTACOL R [Concomitant]
     Dosage: 500 ML, UNK
     Route: 041
     Dates: start: 20121203
  19. SOLDEM 3A [Concomitant]
     Dosage: 500 ML, UNK
     Route: 041
     Dates: start: 20121204
  20. HARTMANN^S SOLUTION [Concomitant]
     Dosage: 500 ML, UNK
     Route: 041
     Dates: start: 20121204
  21. ISOTONIC SODIUM CHLORIDE SOLUTION [Concomitant]
     Dosage: UNK
     Route: 042
     Dates: start: 20121204
  22. OMEPRAL [Concomitant]
     Dosage: 20 MG, BID
     Route: 042
     Dates: start: 20121204

REACTIONS (1)
  - Subarachnoid haemorrhage [Fatal]
